FAERS Safety Report 16816600 (Version 1)
Quarter: 2019Q4

REPORT INFORMATION
  Report Type: Spontaneous
  Country: US (occurrence: US)
  Receive Date: 20190917
  Receipt Date: 20190917
  Transmission Date: 20200122
  Serious: Yes (Other)
  Sender: FDA-Public Use
  Company Number: None

PATIENT
  Age: 74 Year
  Sex: Female
  Weight: 90 kg

DRUGS (4)
  1. CLOBETASOL PROPIONATE OINTMENT USP 0.05% [Suspect]
     Active Substance: CLOBETASOL PROPIONATE
     Indication: LICHEN SCLEROSUS
     Dosage: ?          OTHER STRENGTH:1;QUANTITY:1 1;?
     Route: 061
     Dates: start: 20190907, end: 20190907
  2. CALCIUM [Concomitant]
     Active Substance: CALCIUM
  3. MIABEGRON [Concomitant]
  4. SYNTHROID [Concomitant]
     Active Substance: LEVOTHYROXINE SODIUM

REACTIONS (5)
  - Dizziness [None]
  - Impaired driving ability [None]
  - Therapy cessation [None]
  - Pyrexia [None]
  - Gait disturbance [None]

NARRATIVE: CASE EVENT DATE: 20190908
